FAERS Safety Report 4940060-2 (Version None)
Quarter: 2006Q1

REPORT INFORMATION
  Report Type: 
  Country: None (occurrence: None)
  Receive Date: 20060310
  Receipt Date: 20060120
  Transmission Date: 20060701
  Serious: Yes (Other)
  Sender: FDA-Public Use
  Company Number: JP-ROCHE-433520

PATIENT
  Age: 76 Year
  Sex: Female
  Weight: 38 kg

DRUGS (6)
  1. TAMIFLU [Suspect]
     Route: 048
     Dates: start: 20060109, end: 20060112
  2. ACETAMINOPHEN [Suspect]
     Indication: PYREXIA
     Route: 048
     Dates: start: 20060110, end: 20060112
  3. HOKUNALIN [Concomitant]
     Dosage: DOSE FORM REPORTED AS TAPE.
     Route: 061
     Dates: start: 20060110, end: 20060112
  4. RIVOTRIL [Concomitant]
     Route: 048
     Dates: start: 20040515
  5. SERENACE [Concomitant]
     Route: 048
     Dates: start: 20040915
  6. EURODIN [Concomitant]
     Route: 048
     Dates: start: 20040515

REACTIONS (5)
  - ALANINE AMINOTRANSFERASE INCREASED [None]
  - ASPARTATE AMINOTRANSFERASE INCREASED [None]
  - BLOOD CREATINE PHOSPHOKINASE INCREASED [None]
  - MYOPATHY [None]
  - PNEUMONIA [None]
